FAERS Safety Report 9181351 (Version 1)
Quarter: 2013Q1

REPORT INFORMATION
  Report Type: Spontaneous
  Country: US (occurrence: None)
  Receive Date: 20120621
  Receipt Date: 20120621
  Transmission Date: 20140127
  Serious: Yes (Hospitalization)
  Sender: FDA-Public Use
  Company Number: 031610

PATIENT
  Sex: Female

DRUGS (9)
  1. CIMZIA [Suspect]
     Indication: CROHN^S DISEASE
     Route: 058
     Dates: start: 20090926, end: 20110408
  2. ASCAL (00800002) [Concomitant]
  3. PREDNISONE [Concomitant]
  4. AMOXICILINA/ 00249601 [Concomitant]
  5. CIPROFLOXACIN [Concomitant]
  6. HEPARIN [Concomitant]
  7. HYDROMORPHONE [Concomitant]
  8. PROTONIX [Concomitant]
  9. TYLENOL EXTRA STRENGTH [Concomitant]

REACTIONS (2)
  - Intestinal stenosis [None]
  - Crohn^s disease [None]
